FAERS Safety Report 4764446-4 (Version None)
Quarter: 2005Q3

REPORT INFORMATION
  Report Type: 
  Country: None (occurrence: None)
  Receive Date: 20050906
  Receipt Date: 20050825
  Transmission Date: 20060218
  Serious: Yes (Other)
  Sender: FDA-Public Use
  Company Number: USA-2005-0021062

PATIENT
  Age: 46 Year
  Sex: Male

DRUGS (1)
  1. MORPHINE SULFATE [Suspect]
     Indication: PAIN
     Dosage: 60 MG, SINGLE, ORAL
     Route: 048
     Dates: start: 20050818

REACTIONS (7)
  - ATTENTION DEFICIT/HYPERACTIVITY DISORDER [None]
  - PALPITATIONS [None]
  - PANIC ATTACK [None]
  - RETCHING [None]
  - SUPRAVENTRICULAR TACHYCARDIA [None]
  - TREMOR [None]
  - VOMITING [None]
